FAERS Safety Report 9403016 (Version 3)
Quarter: 2013Q3

REPORT INFORMATION
  Report Type: Report from Study
  Country: CH (occurrence: CH)
  Receive Date: 20130716
  Receipt Date: 20130927
  Transmission Date: 20140515
  Serious: Yes (Hospitalization)
  Sender: FDA-Public Use
  Company Number: CH-BRISTOL-MYERS SQUIBB COMPANY-19108927

PATIENT
  Age: 75 Year
  Sex: Male

DRUGS (6)
  1. CETUXIMAB [Suspect]
     Indication: OESOPHAGEAL CARCINOMA
     Dosage: 450MG-1IN1 WK:UNK-ONG
     Route: 042
     Dates: start: 20130404
  2. CISPLATIN FOR INJ [Suspect]
     Indication: OESOPHAGEAL CARCINOMA
     Route: 042
     Dates: start: 20130404, end: 20130404
  3. CARBOPLATIN [Suspect]
     Indication: OESOPHAGEAL CARCINOMA
     Route: 042
     Dates: start: 20130424
  4. DOCETAXEL [Suspect]
     Indication: OESOPHAGEAL CARCINOMA
     Dosage: 35MG ALSO TAKEN-ONG
     Route: 042
     Dates: start: 20130404
  5. TORASEMIDE [Concomitant]
  6. PERINDOPRIL [Concomitant]

REACTIONS (2)
  - Left ventricular dysfunction [Recovered/Resolved]
  - Pyrexia [Recovered/Resolved]
